FAERS Safety Report 8277169 (Version 4)
Quarter: 2013Q1

REPORT INFORMATION
  Report Type: Report from Study
  Country: CA (occurrence: CA)
  Receive Date: 20111206
  Receipt Date: 20130304
  Transmission Date: 20140127
  Serious: Yes (Other)
  Sender: FDA-Public Use
  Company Number: PHHO2011CA020176

PATIENT
  Age: 64 Year
  Sex: Female
  Weight: 58.1 kg

DRUGS (1)
  1. FTY [Suspect]
     Indication: MULTIPLE SCLEROSIS
     Dosage: 0.5 MG, QD
     Route: 048
     Dates: start: 20110121, end: 20111130

REACTIONS (1)
  - Intraductal proliferative breast lesion [Recovered/Resolved]
